FAERS Safety Report 4511360-5 (Version None)
Quarter: 2004Q4

REPORT INFORMATION
  Report Type: 
  Country: None (occurrence: None)
  Receive Date: 20041123
  Receipt Date: 20041123
  Transmission Date: 20050328
  Serious: Yes (Hospitalization)
  Sender: FDA-Public Use
  Company Number: None

PATIENT
  Sex: Female
  Weight: 83.9154 kg

DRUGS (3)
  1. PHENTERMINE [Suspect]
     Indication: OBESITY
     Dosage: 37.5 MG QD X 3 DAYS
  2. TOPAMAX [Concomitant]
  3. NEXIUM [Concomitant]

REACTIONS (1)
  - DIARRHOEA HAEMORRHAGIC [None]
